FAERS Safety Report 7194380-4 (Version None)
Quarter: 2010Q4

REPORT INFORMATION
  Report Type: 
  Country: None (occurrence: None)
  Receive Date: 20101223
  Receipt Date: 20101214
  Transmission Date: 20110411
  Serious: Yes (Hospitalization, Other)
  Sender: FDA-Public Use
  Company Number: US-BAYER-2010-004977

PATIENT
  Sex: Male

DRUGS (2)
  1. CIPRO [Suspect]
     Indication: POST PROCEDURAL INFECTION
     Route: 048
  2. LISINOPRIL [Concomitant]

REACTIONS (2)
  - PALPITATIONS [None]
  - TACHYCARDIA [None]
